FAERS Safety Report 18477868 (Version 3)
Quarter: 2021Q2

REPORT INFORMATION
  Report Type: Report from Study
  Country: CN (occurrence: CN)
  Receive Date: 20201108
  Receipt Date: 20210524
  Transmission Date: 20210717
  Serious: Yes (Death, Hospitalization)
  Sender: FDA-Public Use
  Company Number: CN-ASTRAZENECA-2020SF36680

PATIENT
  Age: 26343 Day
  Sex: Female

DRUGS (64)
  1. DURVALUMAB. [Suspect]
     Active Substance: DURVALUMAB
     Indication: TRANSITIONAL CELL CARCINOMA
     Route: 042
     Dates: start: 20200724, end: 20200724
  2. TREMELIMUMAB. [Suspect]
     Active Substance: TREMELIMUMAB
     Indication: TRANSITIONAL CELL CARCINOMA
     Route: 042
     Dates: start: 20200703, end: 20200703
  3. TREMELIMUMAB. [Suspect]
     Active Substance: TREMELIMUMAB
     Indication: TRANSITIONAL CELL CARCINOMA
     Route: 042
     Dates: start: 20200917, end: 20200917
  4. GEMCITABINE. [Suspect]
     Active Substance: GEMCITABINE
     Indication: TRANSITIONAL CELL CARCINOMA
     Route: 042
     Dates: start: 20200917, end: 20200917
  5. COMPOUND SODIUM CHLORIDE [Concomitant]
     Indication: FLUID OVERLOAD
     Dosage: 500.0ML ONCE/SINGLE ADMINISTRATION
     Route: 042
     Dates: start: 20200917, end: 20200917
  6. AMLODIPINE MALEATE PILLS [Concomitant]
     Indication: BLOOD PRESSURE MEASUREMENT
     Route: 048
     Dates: start: 20200921, end: 202010
  7. VITAMIN C [Concomitant]
     Active Substance: ASCORBIC ACID
     Indication: NUTRITIONAL SUPPLEMENTATION
     Route: 042
     Dates: start: 20201016, end: 20201016
  8. ANISODAMINE HYDROCHLORIDE INJECTION [Concomitant]
     Indication: MUSCLE SPASMS
     Dosage: 10.0MG ONCE/SINGLE ADMINISTRATION
     Route: 030
     Dates: start: 20201016, end: 20201016
  9. COENZYME A [Concomitant]
     Active Substance: COENZYME A
     Indication: NUTRITIONAL SUPPLEMENTATION
     Route: 042
     Dates: start: 20201016, end: 20201016
  10. GEMCITABINE. [Suspect]
     Active Substance: GEMCITABINE
     Indication: TRANSITIONAL CELL CARCINOMA
     Route: 042
     Dates: start: 20200924, end: 20200924
  11. TROPISETRON [Concomitant]
     Active Substance: TROPISETRON
     Indication: PROPHYLAXIS OF NAUSEA AND VOMITING
     Dosage: 5.0MG ONCE/SINGLE ADMINISTRATION
     Route: 042
     Dates: start: 20200924, end: 20200924
  12. POTASSIUM CHLORIDE. [Concomitant]
     Active Substance: POTASSIUM CHLORIDE
     Indication: ELECTROLYTE IMBALANCE
     Route: 048
     Dates: start: 20200903, end: 202010
  13. VITAMIN B6 [Concomitant]
     Active Substance: PYRIDOXINE HYDROCHLORIDE
     Indication: NUTRITIONAL SUPPLEMENTATION
     Route: 042
     Dates: start: 20201016, end: 20201016
  14. GEMCITABINE. [Suspect]
     Active Substance: GEMCITABINE
     Indication: TRANSITIONAL CELL CARCINOMA
     Route: 042
     Dates: start: 20200710, end: 20200710
  15. GEMCITABINE. [Suspect]
     Active Substance: GEMCITABINE
     Indication: TRANSITIONAL CELL CARCINOMA
     Route: 042
     Dates: start: 20200724, end: 20200724
  16. PANTOPRAZOLE SODIUM. [Concomitant]
     Active Substance: PANTOPRAZOLE SODIUM
     Indication: HYPERCHLORHYDRIA
     Dosage: 40.0MG ONCE/SINGLE ADMINISTRATION
     Route: 042
     Dates: start: 20200917, end: 20200917
  17. RECOMBINANT HUMAN GRANULOCYTE STIMULATING FACTOR INJECTION [Concomitant]
     Indication: LEUKOPENIA
     Dosage: 300.0UG ONCE/SINGLE ADMINISTRATION
     Route: 058
     Dates: start: 20200930, end: 20200930
  18. RECOMBINANT HUMAN THROMBOPOIETIN INJECTION [Concomitant]
     Indication: PLATELET COUNT DECREASED
     Dosage: 1500.00 U ONCE/SINGLE ADMINISTRATION
     Route: 058
     Dates: start: 20200930, end: 20200930
  19. POTASSIUM CHLORIDE. [Concomitant]
     Active Substance: POTASSIUM CHLORIDE
     Indication: ELECTROLYTE IMBALANCE
     Route: 048
     Dates: start: 20201016, end: 20201016
  20. LANSOPRAZOLE. [Concomitant]
     Active Substance: LANSOPRAZOLE
     Indication: HYPERCHLORHYDRIA
     Dosage: 60.0MG ONCE/SINGLE ADMINISTRATION
     Route: 042
     Dates: start: 20201016, end: 20201016
  21. LEVOFLOXACIN MESYLATE INJECTION [Concomitant]
     Indication: INFECTION
     Dosage: 0.6G ONCE/SINGLE ADMINISTRATION
     Route: 042
     Dates: start: 20201016, end: 20201016
  22. DURVALUMAB. [Suspect]
     Active Substance: DURVALUMAB
     Indication: TRANSITIONAL CELL CARCINOMA
     Route: 042
     Dates: start: 20200814, end: 20200814
  23. DURVALUMAB. [Suspect]
     Active Substance: DURVALUMAB
     Indication: TRANSITIONAL CELL CARCINOMA
     Route: 042
     Dates: start: 20200917, end: 20200917
  24. CISPLATIN. [Suspect]
     Active Substance: CISPLATIN
     Indication: TRANSITIONAL CELL CARCINOMA
     Route: 042
     Dates: start: 20200724, end: 20200724
  25. CISPLATIN. [Suspect]
     Active Substance: CISPLATIN
     Indication: TRANSITIONAL CELL CARCINOMA
     Route: 042
     Dates: start: 20200814, end: 20200814
  26. TROPISETRON [Concomitant]
     Active Substance: TROPISETRON
     Indication: PROPHYLAXIS OF NAUSEA AND VOMITING
     Dosage: 5.0MG ONCE/SINGLE ADMINISTRATION
     Route: 042
     Dates: start: 20200917, end: 20200917
  27. PALONOSETRON. [Concomitant]
     Active Substance: PALONOSETRON HYDROCHLORIDE
     Indication: PROPHYLAXIS OF NAUSEA AND VOMITING
     Dosage: 0.25MG ONCE/SINGLE ADMINISTRATION
     Route: 042
     Dates: start: 20200917, end: 20200917
  28. DEXAMETHASONE. [Concomitant]
     Active Substance: DEXAMETHASONE
     Indication: PROPHYLAXIS
     Dosage: 5.0MG ONCE/SINGLE ADMINISTRATION
     Route: 050
     Dates: start: 20200917, end: 20200917
  29. 5% GLUCOSE [Concomitant]
     Active Substance: DEXTROSE
     Indication: FLUID OVERLOAD
     Dosage: 500.0ML ONCE/SINGLE ADMINISTRATION
     Route: 042
     Dates: start: 20200924, end: 20200924
  30. RECOMBINANT HUMAN GRANULOCYTE STIMULATING FACTOR INJECTION [Concomitant]
     Indication: MYELOSUPPRESSION
     Dosage: 300.0UG ONCE/SINGLE ADMINISTRATION
     Route: 058
     Dates: start: 20200930, end: 20200930
  31. POTASSIUM CHLORIDE. [Concomitant]
     Active Substance: POTASSIUM CHLORIDE
     Indication: MINERAL SUPPLEMENTATION
     Route: 048
     Dates: start: 20200903, end: 202010
  32. CEFDINIR DISPERSIBLE TABLETS [Concomitant]
     Indication: INFECTION
     Route: 048
     Dates: start: 20201016, end: 20201019
  33. ORAL REHYDRATION SALTS POWDER [Concomitant]
     Indication: ELECTROLYTE IMBALANCE
     Route: 048
     Dates: start: 20201016, end: 20201020
  34. CISPLATIN. [Suspect]
     Active Substance: CISPLATIN
     Indication: TRANSITIONAL CELL CARCINOMA
     Route: 042
     Dates: start: 20200704, end: 20200704
  35. CISPLATIN. [Suspect]
     Active Substance: CISPLATIN
     Indication: TRANSITIONAL CELL CARCINOMA
     Route: 042
     Dates: start: 20200917, end: 20200917
  36. CIMETIDINE [Concomitant]
     Active Substance: CIMETIDINE
     Indication: HYPERCHLORHYDRIA
     Dosage: 400.0MG ONCE/SINGLE ADMINISTRATION
     Route: 050
     Dates: start: 20200924, end: 20200924
  37. PALONOSETRON. [Concomitant]
     Active Substance: PALONOSETRON HYDROCHLORIDE
     Indication: PROPHYLAXIS OF NAUSEA AND VOMITING
     Dosage: 0.25MG ONCE/SINGLE ADMINISTRATION
     Route: 042
     Dates: start: 20200924, end: 20200924
  38. DIPHENHYDRAMINE. [Concomitant]
     Active Substance: DIPHENHYDRAMINE
     Indication: PROPHYLAXIS OF NAUSEA AND VOMITING
     Dosage: 40.0MG ONCE/SINGLE ADMINISTRATION
     Route: 030
     Dates: start: 20200917, end: 20200917
  39. DIPHENHYDRAMINE. [Concomitant]
     Active Substance: DIPHENHYDRAMINE
     Indication: PROPHYLAXIS OF NAUSEA AND VOMITING
     Dosage: 40.0MG ONCE/SINGLE ADMINISTRATION
     Route: 030
     Dates: start: 20200924, end: 20200924
  40. DEXAMETHASONE. [Concomitant]
     Active Substance: DEXAMETHASONE
     Indication: PROPHYLAXIS
     Dosage: 5.0MG ONCE/SINGLE ADMINISTRATION
     Route: 050
     Dates: start: 20200924, end: 20200924
  41. RECOMBINANT HUMAN THROMBOPOIETIN INJECTION [Concomitant]
     Indication: MYELOSUPPRESSION
     Dosage: 1500.00 U ONCE/SINGLE ADMINISTRATION
     Route: 058
     Dates: start: 20200930, end: 20200930
  42. POTASSIUM CHLORIDE. [Concomitant]
     Active Substance: POTASSIUM CHLORIDE
     Indication: MINERAL SUPPLEMENTATION
     Route: 048
     Dates: start: 20201016, end: 20201016
  43. SODIUM CHLORIDE. [Concomitant]
     Active Substance: SODIUM CHLORIDE
     Indication: FLUID OVERLOAD
     Dosage: 500.0ML ONCE/SINGLE ADMINISTRATION
     Route: 042
     Dates: start: 20200917, end: 20200917
  44. TREMELIMUMAB. [Suspect]
     Active Substance: TREMELIMUMAB
     Indication: TRANSITIONAL CELL CARCINOMA
     Route: 042
     Dates: start: 20200724, end: 20200724
  45. GEMCITABINE. [Suspect]
     Active Substance: GEMCITABINE
     Indication: TRANSITIONAL CELL CARCINOMA
     Route: 042
     Dates: start: 20200814, end: 20200814
  46. CIMETIDINE [Concomitant]
     Active Substance: CIMETIDINE
     Indication: HYPERCHLORHYDRIA
     Dosage: 400.0MG ONCE/SINGLE ADMINISTRATION
     Route: 050
     Dates: start: 20200917, end: 20200917
  47. POLYSACCHARIDEIRON COMPLEX [Concomitant]
     Indication: ANAEMIA
     Route: 048
     Dates: start: 20200903, end: 202012
  48. PANTOPRAZOLE SODIUM ENTERIC?COATED TABLETS [Concomitant]
     Indication: HYPERCHLORHYDRIA
     Route: 048
     Dates: start: 20201016, end: 20201020
  49. TYPE B RH POSITIVE PLATELETS [Concomitant]
     Indication: MYELOSUPPRESSION
     Dosage: 2.00 U ONCE/SINGLE ADMINISTRATION
     Route: 042
     Dates: start: 20201003, end: 20201003
  50. DURVALUMAB. [Suspect]
     Active Substance: DURVALUMAB
     Indication: TRANSITIONAL CELL CARCINOMA
     Route: 042
     Dates: start: 20200703, end: 20200703
  51. TREMELIMUMAB. [Suspect]
     Active Substance: TREMELIMUMAB
     Indication: TRANSITIONAL CELL CARCINOMA
     Route: 042
     Dates: start: 20200814, end: 20200814
  52. GEMCITABINE. [Suspect]
     Active Substance: GEMCITABINE
     Indication: TRANSITIONAL CELL CARCINOMA
     Route: 042
     Dates: start: 20200731, end: 20200731
  53. PANTOPRAZOLE SODIUM. [Concomitant]
     Active Substance: PANTOPRAZOLE SODIUM
     Indication: PROPHYLAXIS OF NAUSEA AND VOMITING
     Dosage: 40.0MG ONCE/SINGLE ADMINISTRATION
     Route: 042
     Dates: start: 20200917, end: 20200917
  54. PANTOPRAZOLE SODIUM. [Concomitant]
     Active Substance: PANTOPRAZOLE SODIUM
     Indication: HYPERCHLORHYDRIA
     Dosage: 40.0MG ONCE/SINGLE ADMINISTRATION
     Route: 042
     Dates: start: 20200924, end: 20200924
  55. COMPOUND SODIUM CHLORIDE [Concomitant]
     Indication: FLUID OVERLOAD
     Dosage: 500.0ML ONCE/SINGLE ADMINISTRATION
     Route: 042
     Dates: start: 20200924, end: 20200924
  56. GEMCITABINE. [Suspect]
     Active Substance: GEMCITABINE
     Indication: TRANSITIONAL CELL CARCINOMA
     Route: 042
     Dates: start: 20200703, end: 20200704
  57. GEMCITABINE. [Suspect]
     Active Substance: GEMCITABINE
     Indication: TRANSITIONAL CELL CARCINOMA
     Route: 042
     Dates: start: 20200821, end: 20200821
  58. PANTOPRAZOLE SODIUM. [Concomitant]
     Active Substance: PANTOPRAZOLE SODIUM
     Indication: PROPHYLAXIS OF NAUSEA AND VOMITING
     Dosage: 40.0MG ONCE/SINGLE ADMINISTRATION
     Route: 042
     Dates: start: 20200924, end: 20200924
  59. POTASSIUM CHLORIDE. [Concomitant]
     Active Substance: POTASSIUM CHLORIDE
     Indication: HYPOKALAEMIA
     Route: 048
     Dates: start: 20200903, end: 202010
  60. POTASSIUM CHLORIDE. [Concomitant]
     Active Substance: POTASSIUM CHLORIDE
     Indication: HYPOKALAEMIA
     Route: 048
     Dates: start: 20201016, end: 20201016
  61. ALUMINIUM HYDROXIDE/ATROPA BELLADONNA HERB LIQUID EXTRACT/AUCKLANDIA COSTUS ROOT/CITRUS X SINENSIS P [Concomitant]
     Indication: MUSCLE SPASMS
     Route: 048
     Dates: start: 20201016, end: 20201018
  62. COMPOUND DIPHENOXYLATE TABLETS [Concomitant]
     Indication: DIARRHOEA
     Route: 048
     Dates: start: 20201016, end: 20201019
  63. FAT?SOLUBLE VITAMIN [Concomitant]
     Active Substance: VITAMINS
     Indication: NUTRITIONAL SUPPLEMENTATION
     Dosage: 1.00 BRANCH EVERY DAY
     Route: 042
     Dates: start: 20201016, end: 20201016
  64. METOCLOPRAMIDE HYDROCHLORIDE. [Concomitant]
     Active Substance: METOCLOPRAMIDE HYDROCHLORIDE
     Indication: PROTOTHECOSIS
     Dosage: 10.0MG ONCE/SINGLE ADMINISTRATION
     Route: 030
     Dates: start: 20201016, end: 20201016

REACTIONS (1)
  - Colitis [Not Recovered/Not Resolved]

NARRATIVE: CASE EVENT DATE: 20201016
